FAERS Safety Report 8532783-3 (Version None)
Quarter: 2012Q3

REPORT INFORMATION
  Report Type: 
  Country: None (occurrence: None)
  Receive Date: 20120711
  Receipt Date: 20111205
  Transmission Date: 20120928
  Serious: Yes (Other)
  Sender: FDA-Public Use
  Company Number: 2011-06224

PATIENT
  Age: 19 Year
  Sex: Female

DRUGS (2)
  1. IMOGAM RABIES-HT [Suspect]
     Indication: IMMUNISATION
  2. RABAVERT [Suspect]
     Indication: IMMUNISATION

REACTIONS (2)
  - ABDOMINAL DISCOMFORT [None]
  - SYNCOPE [None]
